FAERS Safety Report 7976528 (Version 3)
Quarter: 2014Q2

REPORT INFORMATION
  Report Type: Spontaneous
  Country: US (occurrence: US)
  Receive Date: 20110606
  Receipt Date: 20140625
  Transmission Date: 20141212
  Serious: Yes (Hospitalization, Other)
  Sender: FDA-Public Use
  Company Number: US-ASTRAZENECA-2010SE51347

PATIENT
  Age: 59 Year
  Sex: Female
  Weight: 81.2 kg

DRUGS (14)
  1. NEXIUM [Suspect]
     Indication: GASTROOESOPHAGEAL REFLUX DISEASE
     Route: 048
  2. NEXIUM [Suspect]
     Indication: GASTROOESOPHAGEAL REFLUX DISEASE
     Route: 048
  3. LIDOCAINE [Suspect]
     Route: 065
  4. CAINE DRUGS [Suspect]
     Route: 065
  5. SOLTABOL [Concomitant]
     Indication: BLOOD PRESSURE
     Dosage: 1/2 BID
     Dates: start: 1996
  6. VITAMIN D [Concomitant]
  7. ULORIC [Concomitant]
     Indication: GOUT
  8. BABY ASPIRIN [Concomitant]
     Indication: ANTICOAGULANT THERAPY
     Dosage: 1 OR 2 NR
  9. WARFARIN [Concomitant]
     Indication: ANTICOAGULANT THERAPY
     Dates: start: 201402
  10. COUMADIN [Concomitant]
     Indication: ANTICOAGULANT THERAPY
     Dates: end: 201402
  11. BUMEX [Concomitant]
     Indication: FLUID REPLACEMENT
     Dates: end: 2014
  12. BUMEX [Concomitant]
     Indication: FLUID REPLACEMENT
  13. BUMEX [Concomitant]
     Indication: FLUID REPLACEMENT
  14. GENERIC ZAROXOLYN [Concomitant]
     Indication: FLUID REPLACEMENT
     Dosage: 2.5 NR
     Dates: start: 201405

REACTIONS (22)
  - Chest discomfort [Unknown]
  - Blindness [Unknown]
  - Deafness [Unknown]
  - Haemorrhage [Unknown]
  - Renal failure chronic [Not Recovered/Not Resolved]
  - Feeling abnormal [Unknown]
  - Fall [Unknown]
  - Activities of daily living impaired [Not Recovered/Not Resolved]
  - Hypersensitivity [Unknown]
  - Pneumonia [Unknown]
  - Blood glucose abnormal [Unknown]
  - Renal disorder [Not Recovered/Not Resolved]
  - Cardiac disorder [Unknown]
  - Carpal tunnel syndrome [Unknown]
  - Weight fluctuation [Not Recovered/Not Resolved]
  - Sinus disorder [Unknown]
  - Diabetes mellitus [Not Recovered/Not Resolved]
  - Eructation [Not Recovered/Not Resolved]
  - Hypoaesthesia [Not Recovered/Not Resolved]
  - Swelling [Unknown]
  - Drug hypersensitivity [Unknown]
  - Peripheral swelling [Not Recovered/Not Resolved]
